FAERS Safety Report 14739855 (Version 4)
Quarter: 2018Q2

REPORT INFORMATION
  Report Type: Spontaneous
  Country: US (occurrence: US)
  Receive Date: 20180410
  Receipt Date: 20180606
  Transmission Date: 20180711
  Serious: No
  Sender: FDA-Public Use
  Company Number: US-PFIZER INC-2018144453

PATIENT
  Age: 58 Year
  Sex: Female
  Weight: 87 kg

DRUGS (1)
  1. XELJANZ XR [Suspect]
     Active Substance: TOFACITINIB CITRATE
     Indication: RHEUMATOID ARTHRITIS
     Dosage: 11 MG, 1X/DAY
     Route: 048
     Dates: start: 2018, end: 2018

REACTIONS (5)
  - Migraine [Recovered/Resolved]
  - Gastrointestinal pain [Recovered/Resolved]
  - Visual acuity reduced [Unknown]
  - Pain [Unknown]
  - Abdominal pain upper [Recovered/Resolved]

NARRATIVE: CASE EVENT DATE: 2018
